FAERS Safety Report 12937974 (Version 2)
Quarter: 2016Q4

REPORT INFORMATION
  Report Type: Spontaneous
  Country: US (occurrence: US)
  Receive Date: 20161114
  Receipt Date: 20161121
  Transmission Date: 20170207
  Serious: Yes (Other)
  Sender: FDA-Public Use
  Company Number: US-TAKEDA-2016TUS020122

PATIENT
  Sex: Male

DRUGS (6)
  1. ENTYVIO [Suspect]
     Active Substance: VEDOLIZUMAB
     Dosage: UNK, Q4WEEKS
     Route: 065
  2. LOVENOX [Concomitant]
     Active Substance: ENOXAPARIN SODIUM
     Dosage: UNK
     Route: 058
     Dates: end: 20160728
  3. ENTYVIO [Suspect]
     Active Substance: VEDOLIZUMAB
     Indication: CROHN^S DISEASE
     Dosage: 300 MG, UNK
     Route: 065
     Dates: start: 20150126
  4. METHOTREXATE. [Concomitant]
     Active Substance: METHOTREXATE
     Dosage: UNK, QD
     Route: 048
  5. VALACYCLOVIR HCL [Concomitant]
     Active Substance: VALACYCLOVIR HYDROCHLORIDE
  6. VANCOMYCIN [Concomitant]
     Active Substance: VANCOMYCIN
     Indication: CLOSTRIDIUM DIFFICILE INFECTION
     Dosage: UNK

REACTIONS (5)
  - Abdominal pain [Unknown]
  - Headache [Unknown]
  - Off label use [Unknown]
  - Cerebral venous thrombosis [Unknown]
  - Weight decreased [Unknown]
